FAERS Safety Report 6122146-2 (Version None)
Quarter: 2009Q1

REPORT INFORMATION
  Report Type: 
  Country: None (occurrence: None)
  Receive Date: 20090318
  Receipt Date: 20090306
  Transmission Date: 20090719
  Serious: Yes (Other)
  Sender: FDA-Public Use
  Company Number: PHHY2009IT08526

PATIENT
  Age: 55 Year
  Sex: Male

DRUGS (1)
  1. GLEEVEC [Suspect]

REACTIONS (1)
  - ACUTE PSYCHOSIS [None]
